FAERS Safety Report 23490846 (Version 1)
Quarter: 2024Q1

REPORT INFORMATION
  Report Type: Spontaneous
  Country: US (occurrence: None)
  Receive Date: 20240206
  Receipt Date: 20240206
  Transmission Date: 20240410
  Serious: No
  Sender: FDA-Public Use
  Company Number: US-ROCHE-3399542

PATIENT
  Age: 12 Year
  Sex: Male

DRUGS (8)
  1. NUTROPIN AQ [Suspect]
     Active Substance: SOMATROPIN
     Indication: Growth hormone deficiency
     Dosage: ONGOING: UNKNOWN
     Route: 065
  2. NUTROPIN AQ [Suspect]
     Active Substance: SOMATROPIN
  3. NUTROPIN AQ [Suspect]
     Active Substance: SOMATROPIN
     Dosage: ONGOING: NO
     Route: 065
  4. NUTROPIN AQ [Suspect]
     Active Substance: SOMATROPIN
  5. NUTROPIN AQ [Suspect]
     Active Substance: SOMATROPIN
     Dosage: ONGOING: NO
     Route: 065
  6. NUTROPIN AQ [Suspect]
     Active Substance: SOMATROPIN
  7. NUTROPIN AQ [Suspect]
     Active Substance: SOMATROPIN
     Dosage: ONGOING: NO
     Route: 065
     Dates: start: 202101
  8. NUTROPIN AQ [Suspect]
     Active Substance: SOMATROPIN

REACTIONS (2)
  - Liquid product physical issue [Unknown]
  - Weight increased [Unknown]

NARRATIVE: CASE EVENT DATE: 20230701
